FAERS Safety Report 4527992-4 (Version None)
Quarter: 2004Q4

REPORT INFORMATION
  Report Type: 
  Country: None (occurrence: None)
  Receive Date: 20041123
  Receipt Date: 20040323
  Transmission Date: 20050328
  Serious: Yes (Hospitalization)
  Sender: FDA-Public Use
  Company Number: 2004010612

PATIENT
  Age: 68 Year
  Sex: Male
  Weight: 46.1762 kg

DRUGS (5)
  1. LIPITOR [Suspect]
     Indication: HYPERCHOLESTEROLAEMIA
     Dosage: ORAL
     Route: 048
     Dates: start: 19860101, end: 20040121
  2. HYZAAR [Suspect]
     Indication: HYPERTENSION
     Dosage: 100/25 (DAILY), ORAL
     Route: 048
     Dates: start: 19980101, end: 20040121
  3. BLINDED THERAPY (BLINDED THERAPY) [Concomitant]
  4. METFORMIN (METFORMIN) [Concomitant]
  5. DYAZIDE [Concomitant]

REACTIONS (1)
  - PANCREATITIS ACUTE [None]
